FAERS Safety Report 5148858-5 (Version None)
Quarter: 2006Q4

REPORT INFORMATION
  Report Type: 
  Country: None (occurrence: None)
  Receive Date: 20061113
  Receipt Date: 20061023
  Transmission Date: 20070319
  Serious: Yes (Death, Hospitalization, Other)
  Sender: FDA-Public Use
  Company Number: JP-PURDUE-MAG_2006_0000493

PATIENT
  Age: 39 Year
  Sex: Male

DRUGS (11)
  1. OXYCODONE HCL [Suspect]
     Indication: CANCER PAIN
     Dosage: 10 MG, BID
     Route: 048
     Dates: start: 20060401, end: 20060414
  2. OXYCODONE HCL [Suspect]
     Dosage: 20 MG, BID
     Route: 048
     Dates: start: 20060415, end: 20060421
  3. OXYCODONE HCL [Suspect]
     Dosage: 40 MG, BID
     Route: 048
     Dates: start: 20060422, end: 20060426
  4. NOVAMIN [Concomitant]
     Indication: PROPHYLAXIS OF NAUSEA AND VOMITING
     Dosage: 5 MG, BID
     Route: 048
     Dates: start: 20060401
  5. MUCOSTA [Concomitant]
     Indication: GASTRITIS PROPHYLAXIS
     Dosage: 300 MG, DAILY
     Route: 048
     Dates: start: 20060108
  6. MAGNESIUM OXIDE [Concomitant]
     Indication: CONSTIPATION PROPHYLAXIS
     Dosage: .66 GRAM, DAILY
     Route: 048
     Dates: start: 20060401
  7. DEPAKENE [Concomitant]
     Indication: CONVULSION PROPHYLAXIS
     Dosage: 1200 MG, DAILY
     Route: 048
     Dates: start: 20051208
  8. NAPROXEN [Concomitant]
     Indication: TUMOUR ASSOCIATED FEVER
     Dosage: 600 MG, DAILY
     Route: 048
     Dates: start: 20060108
  9. MEXITIL [Concomitant]
     Indication: CANCER PAIN
     Dosage: 150 MG, DAILY
     Route: 048
     Dates: start: 20060422
  10. ANPEC [Concomitant]
     Indication: CANCER PAIN
     Dosage: 20 MG, BID
     Route: 054
     Dates: start: 20060422
  11. FENTANYL CITRATE [Concomitant]
     Indication: DRUG USE FOR UNKNOWN INDICATION
     Dosage: 2.5 MG, UNK
     Route: 065
     Dates: start: 20060426

REACTIONS (7)
  - ABNORMAL BEHAVIOUR [None]
  - DEPRESSED LEVEL OF CONSCIOUSNESS [None]
  - HALLUCINATION [None]
  - NON-SMALL CELL LUNG CANCER [None]
  - RESTLESSNESS [None]
  - SOLILOQUY [None]
  - SOMNOLENCE [None]
